FAERS Safety Report 17165894 (Version 2)
Quarter: 2020Q1

REPORT INFORMATION
  Report Type: Spontaneous
  Country: HN (occurrence: HN)
  Receive Date: 20191217
  Receipt Date: 20200107
  Transmission Date: 20200409
  Serious: Yes (Other)
  Sender: FDA-Public Use
  Company Number: HN-UCBSA-2019053522

PATIENT
  Age: 3 Year
  Sex: Male

DRUGS (3)
  1. KEPPRA [Suspect]
     Active Substance: LEVETIRACETAM
     Indication: OFF LABEL USE
  2. KEPPRA [Suspect]
     Active Substance: LEVETIRACETAM
     Indication: OPSOCLONUS MYOCLONUS
  3. KEPPRA [Suspect]
     Active Substance: LEVETIRACETAM
     Indication: CHIKUNGUNYA VIRUS INFECTION
     Dosage: UNK

REACTIONS (3)
  - Myoclonus [Recovering/Resolving]
  - Off label use [Unknown]
  - Condition aggravated [Recovering/Resolving]
